FAERS Safety Report 7780250-7 (Version None)
Quarter: 2011Q3

REPORT INFORMATION
  Report Type: 
  Country: None (occurrence: None)
  Receive Date: 20110927
  Receipt Date: 20110921
  Transmission Date: 20111222
  Serious: Yes (Other)
  Sender: FDA-Public Use
  Company Number: US-JNJFOC-20110711894

PATIENT
  Sex: Male

DRUGS (8)
  1. FLUTICASONE PROPIONATE [Suspect]
     Indication: SINUS DISORDER
     Route: 045
  2. PREDNISONE [Suspect]
     Indication: SINUS DISORDER
     Route: 048
  3. FLUTICASONE PROPIONATE [Suspect]
     Indication: BRONCHITIS
     Route: 045
  4. LEVAQUIN [Suspect]
     Indication: BRONCHITIS
     Route: 048
  5. LEVAQUIN [Suspect]
     Indication: SINUSITIS
     Route: 048
  6. CLARITIN-D 24 HOUR [Concomitant]
     Indication: SINUS DISORDER
     Route: 065
  7. PREDNISONE [Suspect]
     Indication: BRONCHITIS
     Route: 048
  8. CLARITIN-D 24 HOUR [Concomitant]
     Indication: BRONCHITIS
     Route: 065

REACTIONS (6)
  - ANXIETY [None]
  - POST-TRAUMATIC STRESS DISORDER [None]
  - DEPRESSION [None]
  - EPICONDYLITIS [None]
  - ROTATOR CUFF SYNDROME [None]
  - TENDONITIS [None]
